FAERS Safety Report 5764743-X (Version None)
Quarter: 2008Q2

REPORT INFORMATION
  Report Type: 
  Country: None (occurrence: None)
  Receive Date: 20080611
  Receipt Date: 20080604
  Transmission Date: 20081010
  Serious: Yes (Other)
  Sender: FDA-Public Use
  Company Number: US-MERCK-0806USA00871

PATIENT
  Age: 63 Year
  Sex: Female
  Weight: 76 kg

DRUGS (21)
  1. ZETIA [Suspect]
     Route: 048
     Dates: start: 20060920
  2. REBIF [Suspect]
     Indication: MULTIPLE SCLEROSIS
     Route: 058
     Dates: start: 20060111, end: 20070101
  3. REBIF [Suspect]
     Route: 058
     Dates: start: 20070101, end: 20070101
  4. REBIF [Suspect]
     Route: 058
     Dates: start: 20080101, end: 20080101
  5. REBIF [Suspect]
     Route: 058
     Dates: start: 20080514
  6. REBIF [Suspect]
     Route: 058
     Dates: start: 20070101, end: 20080101
  7. LIPITOR [Suspect]
     Route: 065
     Dates: start: 20060920, end: 20070101
  8. ASPIRIN [Concomitant]
     Route: 065
     Dates: start: 20060918
  9. BLOPRESS PLUS [Concomitant]
     Route: 065
     Dates: start: 20071114
  10. VITAMIN B COMPLEX [Concomitant]
     Route: 065
     Dates: start: 20060918
  11. CALCIUM (UNSPECIFIED) [Concomitant]
     Route: 065
     Dates: start: 20060918
  12. OMEGA-3 MARINE TRIGLYCERIDES [Concomitant]
     Route: 065
     Dates: start: 20060918
  13. OMEGA-3 MARINE TRIGLYCERIDES [Concomitant]
     Route: 048
     Dates: start: 20060918
  14. FOSAMAX PLUS D [Concomitant]
     Route: 048
     Dates: start: 20061005
  15. GLUCOSAMINE [Concomitant]
     Route: 065
     Dates: start: 20060918
  16. IBUPROFEN [Concomitant]
     Route: 065
     Dates: start: 20070409
  17. MILK THISTLE [Concomitant]
     Route: 048
     Dates: start: 20070409
  18. OMEPRAZOLE [Concomitant]
     Route: 048
     Dates: start: 20060918
  19. ESTROGENS, CONJUGATED AND PROGESTERONE [Concomitant]
     Route: 048
     Dates: start: 20071114
  20. VITAMIN D (UNSPECIFIED) [Concomitant]
     Route: 065
     Dates: start: 20060918
  21. VITAMINS (UNSPECIFIED) [Concomitant]
     Route: 065
     Dates: end: 20070406

REACTIONS (4)
  - BLOOD IRON INCREASED [None]
  - GASTROINTESTINAL DISORDER [None]
  - HEPATIC STEATOSIS [None]
  - SERUM FERRITIN INCREASED [None]
